FAERS Safety Report 25101252 (Version 1)
Quarter: 2025Q1

REPORT INFORMATION
  Report Type: Spontaneous
  Country: GB (occurrence: GB)
  Receive Date: 20250320
  Receipt Date: 20250320
  Transmission Date: 20250409
  Serious: Yes (Other)
  Sender: BOEHRINGER INGELHEIM
  Company Number: GB-MHRA-34930279

PATIENT
  Age: 73 Year
  Sex: Male

DRUGS (12)
  1. EMPAGLIFLOZIN [Suspect]
     Active Substance: EMPAGLIFLOZIN
     Indication: Product used for unknown indication
  2. Bisoprolol 7.5 mg tablets [Concomitant]
     Indication: Product used for unknown indication
  3. Edoxaban 60 mg tablets [Concomitant]
     Indication: Product used for unknown indication
  4. Flixonase 50 micrograms / dose aqueous nasal spray [Concomitant]
     Indication: Product used for unknown indication
  5. LANSOPRAZOLE [Concomitant]
     Active Substance: LANSOPRAZOLE
     Indication: Product used for unknown indication
  6. Metformin 500 mg modified-release tablets [Concomitant]
     Indication: Product used for unknown indication
  7. PRAVASTATIN [Concomitant]
     Active Substance: PRAVASTATIN
     Indication: Product used for unknown indication
  8. FUROSEMIDE [Concomitant]
     Active Substance: FUROSEMIDE
     Indication: Product used for unknown indication
  9. Epaderm cream [Concomitant]
     Indication: Product used for unknown indication
  10. Co-codamol 15 mg / 500 mg tablets [Concomitant]
     Indication: Product used for unknown indication
  11. Ramipril 1.25 mg capsules [Concomitant]
     Indication: Product used for unknown indication
  12. Diclofenac diethylammonium 1.16% gel [Concomitant]
     Indication: Product used for unknown indication

REACTIONS (2)
  - Candida infection [Unknown]
  - Balanitis candida [Unknown]
